FAERS Safety Report 9049494 (Version 1)
Quarter: 2013Q1

REPORT INFORMATION
  Report Type: Report from Study
  Country: JP (occurrence: JP)
  Receive Date: 20130205
  Receipt Date: 20130205
  Transmission Date: 20140127
  Serious: Yes (Other)
  Sender: FDA-Public Use
  Company Number: JP-COVIDIEN/TYCO HEALTHCARE/MALLINCKRODT-T201300360

PATIENT
  Sex: 0

DRUGS (2)
  1. FENTANYL CITRATE [Suspect]
     Indication: ANAESTHESIA
     Dosage: UNK
     Route: 064
  2. DIAZEPAM [Suspect]
     Indication: ANAESTHESIA
     Dosage: UNK
     Route: 064

REACTIONS (1)
  - Bradycardia foetal [Recovered/Resolved]
